FAERS Safety Report 8808094 (Version 2)
Quarter: 2012Q4

REPORT INFORMATION
  Report Type: Report from Study
  Country: FR (occurrence: FR)
  Receive Date: 20120925
  Receipt Date: 20121008
  Transmission Date: 20130627
  Serious: Yes (Hospitalization, Other)
  Sender: FDA-Public Use
  Company Number: FR-ROCHE-1123311

PATIENT
  Sex: Female
  Weight: 66 kg

DRUGS (15)
  1. ROACTEMRA [Suspect]
     Indication: RHEUMATOID ARTHRITIS
     Dosage: 520 MG
     Route: 042
     Dates: start: 20101029
  2. ROACTEMRA [Suspect]
     Route: 065
     Dates: start: 20101123
  3. ROACTEMRA [Suspect]
     Route: 065
     Dates: start: 20101221
  4. ROACTEMRA [Suspect]
     Route: 065
     Dates: start: 20110518
  5. CORTANCYL [Suspect]
     Indication: RHEUMATOID ARTHRITIS
     Route: 065
  6. NOVATREX [Concomitant]
     Indication: RHEUMATOID ARTHRITIS
     Route: 065
  7. KETUM [Concomitant]
  8. FIXICAL [Concomitant]
     Route: 065
  9. EFFERALGAN CODEINE [Concomitant]
     Route: 065
  10. DIFFU K [Concomitant]
     Route: 065
  11. INEXIUM [Concomitant]
     Route: 065
  12. MONO-TILDIEM [Concomitant]
     Route: 065
  13. KARDEGIC [Concomitant]
     Route: 065
  14. COOLMETEC [Concomitant]
     Route: 065
  15. ZOPICLONE [Concomitant]
     Route: 065

REACTIONS (9)
  - Diverticulitis [Recovered/Resolved]
  - Large intestine perforation [Recovered/Resolved]
  - Extremity necrosis [Recovered/Resolved]
  - Skin ulcer [Recovered/Resolved]
  - Angiodermatitis [Recovered/Resolved]
  - Asthenia [Not Recovered/Not Resolved]
  - Abdominal pain upper [Not Recovered/Not Resolved]
  - Angina pectoris [Recovered/Resolved]
  - Headache [Not Recovered/Not Resolved]
